APPROVED DRUG PRODUCT: HYDROCODONE POLISTIREX AND CHLORPHENIRAMNE POLISTIREX
Active Ingredient: CHLORPHENIRAMINE POLISTIREX; HYDROCODONE POLISTIREX
Strength: EQ 8MG MALEATE/5ML;EQ 10MG BITARTRATE/5ML
Dosage Form/Route: SUSPENSION, EXTENDED RELEASE;ORAL
Application: A091671 | Product #001
Applicant: NEOS THERAPEUTICS INC
Approved: Jun 29, 2012 | RLD: No | RS: No | Type: DISCN